FAERS Safety Report 8736375 (Version 2)
Quarter: 2012Q4

REPORT INFORMATION
  Report Type: Report from Study
  Country: US (occurrence: US)
  Receive Date: 20120822
  Receipt Date: 20121012
  Transmission Date: 20130627
  Serious: Yes (Hospitalization)
  Sender: FDA-Public Use
  Company Number: US-ROCHE-1019154

PATIENT
  Age: 63 None
  Sex: Female

DRUGS (8)
  1. ZELBORAF [Suspect]
     Indication: METASTATIC MALIGNANT MELANOMA
     Route: 048
     Dates: start: 20111006
  2. ZELBORAF [Suspect]
     Dosage: 4 tablets every morning and 3 tablets every evening
     Route: 065
     Dates: start: 20111006
  3. ATENOLOL [Concomitant]
     Indication: HYPERTENSION
     Route: 048
     Dates: start: 2002
  4. MOTRIN [Concomitant]
     Indication: PAIN
     Route: 048
     Dates: start: 1990
  5. FEXOFENADINE [Concomitant]
     Route: 048
  6. ATORVASTATIN [Concomitant]
     Route: 048
  7. IMODIUM [Concomitant]
     Indication: DIARRHOEA
  8. LIPITOR [Concomitant]
     Route: 048
     Dates: start: 201201

REACTIONS (29)
  - Cellulitis [Recovering/Resolving]
  - Rash [Unknown]
  - Dry skin [Unknown]
  - Blister [Unknown]
  - Skin disorder [Unknown]
  - Pruritus [Unknown]
  - Decreased appetite [Not Recovered/Not Resolved]
  - Fatigue [Unknown]
  - Arthralgia [Unknown]
  - Alopecia [Unknown]
  - Nausea [Unknown]
  - Lacrimation increased [Unknown]
  - Vomiting [Unknown]
  - Constipation [Recovering/Resolving]
  - Diarrhoea [Recovering/Resolving]
  - Vision blurred [Unknown]
  - Fall [Recovering/Resolving]
  - Asthenia [Unknown]
  - Dizziness [Unknown]
  - Arthropathy [Recovering/Resolving]
  - Dysphonia [Unknown]
  - Dysgeusia [Not Recovered/Not Resolved]
  - Squamous cell carcinoma [Recovered/Resolved]
  - Skin reaction [Unknown]
  - Rash erythematous [Recovering/Resolving]
  - Mass [Recovering/Resolving]
  - Dry skin [Unknown]
  - Alopecia [Not Recovered/Not Resolved]
  - Pain [Recovering/Resolving]
